FAERS Safety Report 18664920 (Version 1)
Quarter: 2020Q4

REPORT INFORMATION
  Report Type: Spontaneous
  Country: DE (occurrence: DE)
  Receive Date: 20201225
  Receipt Date: 20201225
  Transmission Date: 20210114
  Serious: Yes (Hospitalization)
  Sender: FDA-Public Use
  Company Number: DE-TEVA-2020-DE-1860796

PATIENT
  Age: 59 Year
  Sex: Male

DRUGS (12)
  1. SACUBITRIL/VALSARTAN [Suspect]
     Active Substance: SACUBITRIL\VALSARTAN
     Dosage: 2 DOSAGE FORMS DAILY; 24|26 MG, 1-0-1-0
     Route: 065
  2. PANTOPRAZOL [Concomitant]
     Active Substance: PANTOPRAZOLE SODIUM
     Dosage: 20 MILLIGRAM DAILY; 20 MG, 1-0-0-0
  3. ATORVASTATIN [Concomitant]
     Active Substance: ATORVASTATIN
     Dosage: 20 MILLIGRAM DAILY; 20 MG, 0-0-1-0
  4. TORASEMID [Suspect]
     Active Substance: TORSEMIDE
     Dosage: 20 MG, 1-0.5-0-0
  5. LEVOTHYROXIN-NATRIUM [Concomitant]
     Active Substance: LEVOTHYROXINE SODIUM
     Dosage: 100 MICROGRAM DAILY; 100 MICROGRAM, 1-0-0-0
  6. LIRAGLUTID [Concomitant]
     Active Substance: LIRAGLUTIDE
     Dosage: 1.2 MILLIGRAM DAILY; 1.2 MG, 1-0-0-0
  7. INSULIN LISPRO [Concomitant]
     Active Substance: INSULIN LISPRO
     Dosage: ACCORDING TO BZ
     Route: 058
  8. SPIRONOLACTON [Suspect]
     Active Substance: SPIRONOLACTONE
     Dosage: .5 DOSAGE FORMS DAILY; 50 MG, 0.5-0-0-0
     Route: 065
  9. METOPROLOL. [Suspect]
     Active Substance: METOPROLOL
     Dosage: 190 MILLIGRAM DAILY; 95 MG, 1-0-1-0
     Route: 065
  10. INSULIN DETEMIR [Concomitant]
     Active Substance: INSULIN DETEMIR
     Dosage: 16 IU (INTERNATIONAL UNIT) DAILY; 16 IU, 0-0-1-0
     Route: 058
  11. PREGABALIN. [Concomitant]
     Active Substance: PREGABALIN
     Dosage: 50 MILLIGRAM DAILY; 25 MG, 1-0-1-0
  12. KALIUM [Concomitant]
     Active Substance: POTASSIUM CHLORIDE
     Dosage: 4 TIMES A WEEK, EFFERVESCENT TABLETS

REACTIONS (4)
  - Condition aggravated [Unknown]
  - Hypotension [Unknown]
  - Dehydration [Unknown]
  - Renal impairment [Unknown]
